FAERS Safety Report 6072655-X (Version None)
Quarter: 2009Q1

REPORT INFORMATION
  Report Type: 
  Country: None (occurrence: None)
  Receive Date: 20090210
  Receipt Date: 20090129
  Transmission Date: 20090719
  Serious: Yes (Hospitalization)
  Sender: FDA-Public Use
  Company Number: FR-PFIZER INC-2009163836

PATIENT

DRUGS (10)
  1. TRIFLUCAN [Suspect]
     Indication: MOUTH INJURY
     Dates: start: 20080327, end: 20080331
  2. ROCEPHIN [Suspect]
     Route: 042
     Dates: start: 20080319, end: 20080328
  3. BISOPROLOL FUMARATE [Concomitant]
  4. PANTOPRAZOL [Concomitant]
  5. PARACETAMOL [Concomitant]
  6. HEPARIN [Concomitant]
     Dates: start: 20080304, end: 20080327
  7. DRUG, UNSPECIFIED [Concomitant]
     Dates: start: 20080316
  8. WARFARIN [Concomitant]
     Dates: start: 20080321
  9. AMOXICILLIN + CLAVULANATE POTASSIUM [Concomitant]
     Dates: start: 20080317, end: 20080319
  10. AMPHOTERICIN B [Concomitant]
     Dates: start: 20080326

REACTIONS (2)
  - HYPERTHYROIDISM [None]
  - URTICARIA [None]
